FAERS Safety Report 6029359-9 (Version None)
Quarter: 2009Q1

REPORT INFORMATION
  Report Type: 
  Country: None (occurrence: None)
  Receive Date: 20090105
  Receipt Date: 20081224
  Transmission Date: 20090719
  Serious: Yes (Hospitalization)
  Sender: FDA-Public Use
  Company Number: 2008SP026110

PATIENT
  Age: 83 Year
  Sex: Female

DRUGS (1)
  1. BETAMETHASONE SODIUM PHOSPHATE [Suspect]
     Indication: POLYMYALGIA RHEUMATICA
     Dosage: 3 MG;QD

REACTIONS (5)
  - CHILLS [None]
  - DRUG ERUPTION [None]
  - EXTRADURAL ABSCESS [None]
  - INTERVERTEBRAL DISCITIS [None]
  - SPINAL CORD COMPRESSION [None]
